FAERS Safety Report 14589392 (Version 1)
Quarter: 2018Q1

REPORT INFORMATION
  Report Type: Report from Study
  Country: JP (occurrence: JP)
  Receive Date: 20180302
  Receipt Date: 20180302
  Transmission Date: 20180509
  Serious: Yes (Death)
  Sender: FDA-Public Use
  Company Number: JP-ROCHE-2077627

PATIENT

DRUGS (5)
  1. PEMETREXED SODIUM HYDRATE [Concomitant]
     Active Substance: PEMETREXED
     Indication: NON-SMALL CELL LUNG CANCER
     Dosage: 4CYCLES
     Route: 041
     Dates: start: 20150113
  2. BEVACIZUMAB. [Suspect]
     Active Substance: BEVACIZUMAB
     Indication: NON-SMALL CELL LUNG CANCER
     Dosage: 4CYCLES
     Route: 041
     Dates: start: 20150113
  3. BEVACIZUMAB. [Suspect]
     Active Substance: BEVACIZUMAB
     Route: 041
     Dates: start: 20150428, end: 20150428
  4. PEMETREXED SODIUM HYDRATE [Concomitant]
     Active Substance: PEMETREXED
     Route: 041
     Dates: start: 20150428, end: 20150428
  5. CARBOPLATIN. [Concomitant]
     Active Substance: CARBOPLATIN
     Indication: NON-SMALL CELL LUNG CANCER
     Dosage: AUC6?4CYCLES
     Route: 041
     Dates: start: 20150113

REACTIONS (3)
  - Sepsis [Fatal]
  - Myelodysplastic syndrome [Fatal]
  - Infection [Fatal]

NARRATIVE: CASE EVENT DATE: 2017
